FAERS Safety Report 14296962 (Version 3)
Quarter: 2018Q2

REPORT INFORMATION
  Report Type: Spontaneous
  Country: US (occurrence: US)
  Receive Date: 20171218
  Receipt Date: 20180516
  Transmission Date: 20180711
  Serious: Yes (Hospitalization)
  Sender: FDA-Public Use
  Company Number: US-PFIZER INC-2016223487

PATIENT
  Age: 77 Year
  Sex: Female
  Weight: 77.11 kg

DRUGS (15)
  1. METROGEL [Concomitant]
     Active Substance: METRONIDAZOLE
     Dosage: UNK, 2X/DAY, (APPLY TOPICALLY 2 TIMES DAILY)
     Route: 061
  2. KRILL OIL [Concomitant]
     Active Substance: DIETARY SUPPLEMENT
     Dosage: 300 MG, DAILY
     Route: 048
  3. CALCIUM CARBONATE AND VITAMIN D [Concomitant]
     Active Substance: CALCIUM CARBONATE\VITAMIN D
     Dosage: UNK, DAILY
     Route: 048
  4. VITAMIN C [Concomitant]
     Active Substance: ASCORBIC ACID
     Dosage: 500 MG, DAILY
     Route: 048
  5. LYRICA [Suspect]
     Active Substance: PREGABALIN
     Indication: FIBROMYALGIA
     Dosage: 75 MG, AS NEEDED (TAKE ONE CAPSULE BY MOUTH THREE TIMES A DAY AS NEEDED)
     Route: 048
  6. ASPIRIN 81 [Concomitant]
     Active Substance: ASPIRIN
     Dosage: 81 MG, DAILY
     Route: 048
  7. ALEVE [Concomitant]
     Active Substance: NAPROXEN SODIUM
     Dosage: 2 DF, 2X/DAY
     Route: 048
  8. FLONASE [Concomitant]
     Active Substance: FLUTICASONE PROPIONATE
     Dosage: 50 UG, AS NEEDED [50 MCG/ACT NASAL SPRAY] [PLACE ONE SPRAY IN EACH NOSTRIL ONCE DAILY AS NEEDED]
     Route: 045
  9. LIORESAL [Concomitant]
     Active Substance: BACLOFEN
     Dosage: 10 MG, 1X/DAY (TAKE ONE TABLET BY MOUTH EVERY NIGHT AT BEDTIME)
     Route: 048
  10. PROVENTIL HFA [Concomitant]
     Active Substance: ALBUTEROL SULFATE
     Indication: WHEEZING
     Dosage: 216 UG, AS NEEDED [108 (90 BASE) MCG/ACT] [INHALE 2 PUFFS INTO THE LUNGS EVERY 6 HOURS AS NEEDED]
     Route: 055
  11. THERAGRAN-M [Concomitant]
     Active Substance: VITAMINS
     Dosage: 1 DF, DAILY [TAKE 1 TABLET BY MOUTH DAILY]
     Route: 048
  12. LYRICA [Suspect]
     Active Substance: PREGABALIN
     Indication: MULTIPLE SCLEROSIS
     Dosage: 75 MG, TWICE A DAY
     Route: 048
  13. LYRICA [Suspect]
     Active Substance: PREGABALIN
     Dosage: 75 MG, UNK; [2-3 TIMES A DAY]
     Route: 048
  14. ROBAXIN [Concomitant]
     Active Substance: METHOCARBAMOL
     Dosage: 750 MG, AS NEEDED, (TAKE 750MG BY MOUTH NIGHTLY AS NEEDED)
     Route: 048
  15. COENZYME Q10 [Concomitant]
     Active Substance: UBIDECARENONE
     Dosage: 100 MG, 1X/DAY
     Route: 048

REACTIONS (9)
  - Road traffic accident [Unknown]
  - Amnesia [Unknown]
  - Intentional product misuse [Unknown]
  - Fall [Unknown]
  - Loss of consciousness [Unknown]
  - Head injury [Recovered/Resolved with Sequelae]
  - Subdural haematoma [Unknown]
  - Aphasia [Unknown]
  - Product use issue [Unknown]

NARRATIVE: CASE EVENT DATE: 20171028
